FAERS Safety Report 7498102-9 (Version None)
Quarter: 2011Q2

REPORT INFORMATION
  Report Type: 
  Country: None (occurrence: None)
  Receive Date: 20110524
  Receipt Date: 20110512
  Transmission Date: 20111010
  Serious: No
  Sender: FDA-Public Use
  Company Number: US-BIOGENIDEC-2011BI018400

PATIENT
  Age: 21 Year
  Sex: Female

DRUGS (3)
  1. COPAXONE [Concomitant]
  2. REBIF [Concomitant]
  3. TYSABRI [Suspect]
     Indication: MULTIPLE SCLEROSIS
     Route: 042
     Dates: start: 20110211

REACTIONS (1)
  - MULTIPLE SCLEROSIS RELAPSE [None]
